FAERS Safety Report 17329962 (Version 1)
Quarter: 2020Q1

REPORT INFORMATION
  Report Type: Spontaneous
  Country: US (occurrence: US)
  Receive Date: 20200128
  Receipt Date: 20200128
  Transmission Date: 20200409
  Serious: Yes (Death)
  Sender: FDA-Public Use
  Company Number: US-PERRIGO-20US000827

PATIENT
  Age: 14 Year
  Sex: Female

DRUGS (3)
  1. HYDROXYCHLOROQUINE [Suspect]
     Active Substance: HYDROXYCHLOROQUINE
     Indication: SUSPECTED SUICIDE
     Dosage: UNKNOWN, SINGLE
     Route: 048
  2. IBUPROFEN. [Suspect]
     Active Substance: IBUPROFEN
     Indication: SUSPECTED SUICIDE
     Dosage: UNKNOWN, SINGLE
     Route: 048
  3. NAPROXEN. [Suspect]
     Active Substance: NAPROXEN
     Indication: SUSPECTED SUICIDE
     Dosage: UNKNOWN, SINGLE
     Route: 048

REACTIONS (3)
  - Cardiac arrest [Fatal]
  - Pulmonary oedema [Fatal]
  - Toxicity to various agents [Fatal]

NARRATIVE: CASE EVENT DATE: 2018
